FAERS Safety Report 10051849 (Version 1)
Quarter: 2014Q2

REPORT INFORMATION
  Report Type: Spontaneous
  Country: BE (occurrence: BE)
  Receive Date: 20140402
  Receipt Date: 20140402
  Transmission Date: 20141212
  Serious: Yes (Disabling)
  Sender: FDA-Public Use
  Company Number: BE-ROCHE-1374473

PATIENT
  Sex: Male

DRUGS (9)
  1. XOLAIR [Suspect]
     Indication: PRODUCT USED FOR UNKNOWN INDICATION
     Route: 065
     Dates: start: 201303
  2. MONTELUKAST [Concomitant]
     Route: 065
  3. LENDORMIN [Concomitant]
     Route: 065
  4. LESCOL [Concomitant]
  5. TERAZOSABB [Concomitant]
     Route: 065
  6. TAVONIN [Concomitant]
     Route: 065
  7. CITALOPRAM [Concomitant]
     Route: 065
  8. AZITHROMYCIN [Concomitant]
     Route: 065
  9. SYMBICORT [Concomitant]
     Route: 065

REACTIONS (1)
  - Limb discomfort [Not Recovered/Not Resolved]
